FAERS Safety Report 17140941 (Version 2)
Quarter: 2019Q4

REPORT INFORMATION
  Report Type: Report from Study
  Country: US (occurrence: US)
  Receive Date: 20191211
  Receipt Date: 20191226
  Transmission Date: 20200122
  Serious: Yes (Hospitalization)
  Sender: FDA-Public Use
  Company Number: US-AMGEN-USACT2019204936

PATIENT
  Age: 69 Year
  Sex: Male
  Weight: 135.7 kg

DRUGS (21)
  1. LENALIDOMIDE [Suspect]
     Active Substance: LENALIDOMIDE
     Indication: NON-HODGKIN^S LYMPHOMA
     Dosage: 20 MILLIGRAM, QD
     Route: 048
     Dates: start: 20191030, end: 20191103
  2. ACYCLOVIR [ACICLOVIR] [Concomitant]
     Active Substance: ACYCLOVIR
  3. CALCIUM [Concomitant]
     Active Substance: CALCIUM
  4. SODIUM CHLORIDE. [Concomitant]
     Active Substance: SODIUM CHLORIDE
  5. BRIMONIDINE [Concomitant]
     Active Substance: BRIMONIDINE TARTRATE
  6. CARBIDOPA/LEVODOPA [Concomitant]
     Active Substance: CARBIDOPA\LEVODOPA
  7. VITAMIN D3 [Concomitant]
     Active Substance: CHOLECALCIFEROL
  8. ESCITALOPRAM [Concomitant]
     Active Substance: ESCITALOPRAM OXALATE
  9. FUROSEMIDE. [Concomitant]
     Active Substance: FUROSEMIDE
  10. BUPROPION. [Concomitant]
     Active Substance: BUPROPION
  11. BLINATUMOMAB [Suspect]
     Active Substance: BLINATUMOMAB
     Dosage: 9 MICROGRAM, QD
     Route: 042
     Dates: start: 20191103, end: 20191103
  12. IBUPROFEN. [Concomitant]
     Active Substance: IBUPROFEN
  13. MULTIVITAMIN [ASCORBIC ACID;BIOTIN;CALCIUM PANTOTHENATE;CYANOCOBALAMIN [Concomitant]
     Active Substance: VITAMINS
  14. TRIMETHOPRIM SULFAMETHOXAZOLE [Concomitant]
     Active Substance: SULFAMETHOXAZOLE\TRIMETHOPRIM
  15. DEXTRAN 70;HYPROMELLOSE [Concomitant]
  16. BLINATUMOMAB [Suspect]
     Active Substance: BLINATUMOMAB
     Indication: NON-HODGKIN^S LYMPHOMA
     Dosage: 9 MICROGRAM, QD
     Route: 042
     Dates: start: 20191030, end: 20191030
  17. GABAPENTIN. [Concomitant]
     Active Substance: GABAPENTIN
  18. ONDANSETRON [Concomitant]
     Active Substance: ONDANSETRON
  19. PSYLLIUM HUSK [PLANTAGO OVATA HUSK] [Concomitant]
     Active Substance: HERBALS\PLANTAGO OVATA SEED COAT
  20. DOCUSATE;SENNA [Concomitant]
  21. SILDENAFIL. [Concomitant]
     Active Substance: SILDENAFIL

REACTIONS (5)
  - Confusional state [Recovered/Resolved]
  - Tremor [Recovered/Resolved]
  - Ataxia [Recovered/Resolved]
  - Gait disturbance [Recovered/Resolved]
  - Dysarthria [Recovered/Resolved]

NARRATIVE: CASE EVENT DATE: 20191030
